FAERS Safety Report 9341710 (Version 3)
Quarter: 2014Q2

REPORT INFORMATION
  Report Type: Spontaneous
  Country: US (occurrence: US)
  Receive Date: 20130611
  Receipt Date: 20140613
  Transmission Date: 20141212
  Serious: No
  Sender: FDA-Public Use
  Company Number: US-PFIZER INC-2013171771

PATIENT
  Age: 81 Year
  Sex: Female

DRUGS (3)
  1. CALAN SR [Suspect]
     Dosage: 240 MG, 2X/DAY
     Route: 048
  2. ISOPTIN SR [Suspect]
     Dosage: 240 MG, UNK
  3. VERAPAMIL HYDROCHLORIDE [Suspect]

REACTIONS (2)
  - Chest pain [Unknown]
  - Dyspnoea [Unknown]
